FAERS Safety Report 4873802-5 (Version None)
Quarter: 2006Q1

REPORT INFORMATION
  Report Type: 
  Country: None (occurrence: None)
  Receive Date: 20060106
  Receipt Date: 20051222
  Transmission Date: 20060701
  Serious: Yes (Other)
  Sender: FDA-Public Use
  Company Number: FR-RB-2495-2005

PATIENT
  Age: 44 Year
  Sex: Male

DRUGS (6)
  1. BUPRENORPHINE HCL [Suspect]
     Indication: DRUG DEPENDENCE
     Route: 065
  2. STAVUDINE [Concomitant]
     Indication: HIV INFECTION
     Dosage: DOSAGE UNKNOWN
     Route: 065
  3. LAMIVUDINE [Concomitant]
     Indication: HIV INFECTION
     Dosage: DOSAGE UNKNOWN
     Route: 065
  4. NELFINAVIR MESILATE [Concomitant]
     Indication: HIV INFECTION
     Dosage: DOSAGE UNKNOWN
     Route: 065
  5. NEO-CODION ^THERABEL PHARMA^ [Concomitant]
     Indication: DRUG USE FOR UNKNOWN INDICATION
     Dosage: DOSAGE UNKNOWN
     Route: 065
     Dates: start: 19950101
  6. ALCOHOL [Concomitant]
     Indication: DRUG USE FOR UNKNOWN INDICATION
     Dosage: DOSAGE UNKNOWN
     Route: 065
     Dates: start: 19950101

REACTIONS (1)
  - HEPATITIS C [None]
